FAERS Safety Report 5427444-3 (Version None)
Quarter: 2007Q3

REPORT INFORMATION
  Report Type: 
  Country: None (occurrence: None)
  Receive Date: 20070828
  Receipt Date: 20070816
  Transmission Date: 20080115
  Serious: Yes (Other)
  Sender: FDA-Public Use
  Company Number: NZ-GENENTECH-246417

PATIENT
  Sex: Female

DRUGS (4)
  1. TRASTUZUMAB [Suspect]
     Indication: BREAST CANCER METASTATIC
     Dosage: 8 MG/M2, UNK
  2. TRASTUZUMAB [Suspect]
     Dosage: 520 MG, UNK
  3. TRASTUZUMAB [Suspect]
     Dosage: 170 MG, UNK
  4. DOCETAXEL [Concomitant]
     Indication: BREAST CANCER METASTATIC

REACTIONS (2)
  - DRUG EXPOSURE DURING PREGNANCY [None]
  - OLIGOHYDRAMNIOS [None]
